FAERS Safety Report 5779439-8 (Version None)
Quarter: 2008Q2

REPORT INFORMATION
  Report Type: 
  Country: None (occurrence: None)
  Receive Date: 20080619
  Receipt Date: 20080609
  Transmission Date: 20081010
  Serious: Yes (Hospitalization, Disabling, Other)
  Sender: FDA-Public Use
  Company Number: US-PFIZER INC-2006054542

PATIENT
  Sex: Female

DRUGS (2)
  1. BEXTRA [Suspect]
     Indication: ILL-DEFINED DISORDER
  2. BEXTRA [Suspect]
     Indication: ARTHRITIS

REACTIONS (5)
  - CARDIAC DISORDER [None]
  - INSOMNIA [None]
  - LUNG DISORDER [None]
  - RASH [None]
  - THROMBOSIS [None]
